FAERS Safety Report 5321916-8 (Version None)
Quarter: 2007Q2

REPORT INFORMATION
  Report Type: 
  Country: None (occurrence: None)
  Receive Date: 20070508
  Receipt Date: 20070508
  Transmission Date: 20071010
  Serious: Yes (Other)
  Sender: FDA-Public Use
  Company Number: None

PATIENT
  Age: 57 Year
  Sex: Female

DRUGS (2)
  1. LEVAQUIN [Suspect]
     Indication: SINUSITIS
     Dosage: 500 MG DAILY ORAL
     Route: 048
     Dates: start: 20060306, end: 20060326
  2. LEVAQUIN [Suspect]
     Indication: SINUSITIS
     Dosage: 750MG DAILY ORAL
     Route: 048
     Dates: start: 20060328, end: 20060408

REACTIONS (3)
  - ABASIA [None]
  - CONDITION AGGRAVATED [None]
  - HYPOKINESIA [None]
